FAERS Safety Report 10355095 (Version 1)
Quarter: 2014Q3

REPORT INFORMATION
  Report Type: Spontaneous
  Country: US (occurrence: None)
  Receive Date: 20140729
  Receipt Date: 20140729
  Transmission Date: 20150326
  Serious: No
  Sender: FDA-Public Use
  Company Number: None

PATIENT
  Age: 8 Month
  Sex: Male
  Weight: 10.43 kg

DRUGS (3)
  1. VIGAMOX [Suspect]
     Active Substance: MOXIFLOXACIN HYDROCHLORIDE
     Indication: CONJUNCTIVITIS BACTERIAL
     Dosage: 2 DROPS  THREE TIMES DAILY  INTO THE EYE
     Route: 047
     Dates: start: 20140724, end: 20140727
  2. TYLENOL [Concomitant]
     Active Substance: ACETAMINOPHEN
  3. INFANTS IBUPROFEN [Concomitant]
     Active Substance: IBUPROFEN

REACTIONS (1)
  - Candida infection [None]

NARRATIVE: CASE EVENT DATE: 20140726
